FAERS Safety Report 6307181-3 (Version None)
Quarter: 2009Q3

REPORT INFORMATION
  Report Type: 
  Country: None (occurrence: None)
  Receive Date: 20090813
  Receipt Date: 20090804
  Transmission Date: 20100115
  Serious: Yes (Hospitalization)
  Sender: FDA-Public Use
  Company Number: US-BIOGENIDEC-2007BI017236

PATIENT
  Age: 47 Year
  Sex: Female

DRUGS (1)
  1. AVONEX [Suspect]
     Indication: MULTIPLE SCLEROSIS
     Route: 030
     Dates: start: 20040305, end: 20070930

REACTIONS (4)
  - ANKLE OPERATION [None]
  - ARTHRALGIA [None]
  - ARTHRITIS [None]
  - STAPHYLOCOCCAL INFECTION [None]
